FAERS Safety Report 10920435 (Version 9)
Quarter: 2017Q1

REPORT INFORMATION
  Report Type: Report from Study
  Country: DE (occurrence: DE)
  Receive Date: 20150317
  Receipt Date: 20170324
  Transmission Date: 20170428
  Serious: Yes (Hospitalization, Other)
  Sender: FDA-Public Use
  Company Number: DE-ROCHE-1549604

PATIENT
  Age: 58 Year
  Sex: Female
  Weight: 60 kg

DRUGS (20)
  1. DEXAMETHASON [Concomitant]
     Active Substance: DEXAMETHASONE
  2. EMEND [Concomitant]
     Active Substance: APREPITANT
  3. ZOMETA [Concomitant]
     Active Substance: ZOLEDRONIC ACID
     Indication: NON-SMALL CELL LUNG CANCER
     Route: 042
     Dates: start: 20150105
  4. NEULASTA [Concomitant]
     Active Substance: PEGFILGRASTIM
     Indication: NON-SMALL CELL LUNG CANCER
     Dosage: 24-72 H POST CHEMOTHERAPY
     Route: 058
     Dates: start: 20141219
  5. AMLODIPIN [Concomitant]
     Active Substance: AMLODIPINE BESYLATE
  6. LAFOL [Concomitant]
  7. RAMIPRIL. [Concomitant]
     Active Substance: RAMIPRIL
     Indication: HYPERTENSION
     Route: 048
  8. XARELTO [Concomitant]
     Active Substance: RIVAROXABAN
  9. BEVACIZUMAB [Suspect]
     Active Substance: BEVACIZUMAB
     Indication: NON-SMALL CELL LUNG CANCER
     Dosage: MOST RECENT DOSE ON: 04/FEB/2015
     Route: 042
     Dates: start: 20141216
  10. PEMETREXED [Suspect]
     Active Substance: PEMETREXED
     Indication: NON-SMALL CELL LUNG CANCER
     Dosage: MOST RECENT DOSE ON: 26/FEB/2015
     Route: 042
     Dates: start: 20141216
  11. VITAMIN B12 [Concomitant]
     Active Substance: CYANOCOBALAMIN
  12. NOVALGIN [Concomitant]
     Active Substance: METAMIZOLE SODIUM
     Indication: NON-SMALL CELL LUNG CANCER
     Route: 048
     Dates: start: 20141101
  13. OXYGESIC [Concomitant]
     Active Substance: OXYCODONE
  14. PANTOZOL [Concomitant]
     Active Substance: PANTOPRAZOLE SODIUM
     Route: 048
     Dates: start: 20141101
  15. KEVATRIL [Concomitant]
     Active Substance: GRANISETRON HYDROCHLORIDE
  16. METAMIZOL [Concomitant]
     Active Substance: METAMIZOLE SODIUM
  17. CISPLATIN. [Suspect]
     Active Substance: CISPLATIN
     Indication: NON-SMALL CELL LUNG CANCER
     Dosage: MOST RECENT DOSE ON: 26/FEB/2015
     Route: 042
     Dates: start: 20141216
  18. IBUHEXAL [Concomitant]
     Active Substance: IBUPROFEN
     Route: 048
     Dates: start: 20141201
  19. BISOPROLOL [Concomitant]
     Active Substance: BISOPROLOL
  20. HYDROCHLOROTHIAZIDE. [Concomitant]
     Active Substance: HYDROCHLOROTHIAZIDE
     Indication: HYPERTENSION
     Route: 048
     Dates: start: 20141215

REACTIONS (8)
  - Dyspnoea exertional [Recovered/Resolved]
  - Deep vein thrombosis [Not Recovered/Not Resolved]
  - Device related infection [Recovered/Resolved]
  - Haematoma [Recovered/Resolved]
  - Platelet count decreased [Not Recovered/Not Resolved]
  - Epistaxis [Recovering/Resolving]
  - General physical health deterioration [Recovered/Resolved with Sequelae]
  - Weight decreased [Recovered/Resolved]

NARRATIVE: CASE EVENT DATE: 20141216
